FAERS Safety Report 10218666 (Version 1)
Quarter: 2014Q2

REPORT INFORMATION
  Report Type: Report from Study
  Country: IT (occurrence: None)
  Receive Date: 20140603
  Receipt Date: 20140603
  Transmission Date: 20141212
  Serious: Yes (Life-Threatening)
  Sender: FDA-Public Use
  Company Number: 2014DEPIT00055

PATIENT
  Age: 32 Year
  Sex: Male

DRUGS (4)
  1. DEPOCYTE (CYTARABINE) LIPOSOME INJECTABLE SUSPENSION, MG [Suspect]
     Indication: ACUTE LYMPHOCYTIC LEUKAEMIA
     Route: 037
     Dates: start: 20110516, end: 20110516
  2. CHEMOTHERAPEUTICS (CHEMOTHERAPEUTICS) [Suspect]
     Indication: ACUTE LYMPHOCYTIC LEUKAEMIA
     Dates: start: 2011
  3. METHADONE (METHADONE HYDROCHLORIDE) [Concomitant]
  4. DEXAMETHASONE (DEXAMETHASONE) [Concomitant]

REACTIONS (2)
  - Encephalitis toxic [None]
  - Encephalopathy [None]
